FAERS Safety Report 17979903 (Version 1)
Quarter: 2020Q3

REPORT INFORMATION
  Report Type: Report from Study
  Country: EG (occurrence: EG)
  Receive Date: 20200703
  Receipt Date: 20200703
  Transmission Date: 20201103
  Serious: Yes (Other)
  Sender: FDA-Public Use
  Company Number: NVSC2020EG186989

PATIENT
  Age: 10 Year
  Sex: Male
  Weight: 30.5 kg

DRUGS (7)
  1. FOSTER [Concomitant]
     Active Substance: BECLOMETHASONE\FORMOTEROL
     Indication: HYPERSENSITIVITY
     Dosage: UNK, SPRAY, (STARTED SINCE BIRTH AND STILL ONGOING BUT RECENTLY WHEN NEEDED ONLY)
     Route: 065
  2. ZINC. [Concomitant]
     Active Substance: ZINC
     Indication: PRODUCT USED FOR UNKNOWN INDICATION
     Dosage: 3 CM, QD
     Route: 065
     Dates: start: 202006
  3. OMNITROPE [Suspect]
     Active Substance: SOMATROPIN
     Dosage: 0.8 MG, QD
     Route: 058
     Dates: start: 201911
  4. VIDROP [Concomitant]
     Indication: PRODUCT USED FOR UNKNOWN INDICATION
     Dosage: 1 DRP, QD (STARTED WITH OMNITROPE)
     Route: 065
     Dates: start: 20180708, end: 201911
  5. OMNITROPE [Suspect]
     Active Substance: SOMATROPIN
     Dosage: 0.9 MG, QD
     Route: 058
     Dates: start: 202006
  6. IRON [Concomitant]
     Active Substance: IRON
     Indication: PRODUCT USED FOR UNKNOWN INDICATION
     Dosage: 5 CM, QD
     Route: 065
     Dates: start: 201911
  7. OMNITROPE [Suspect]
     Active Substance: SOMATROPIN
     Indication: GROWTH HORMONE DEFICIENCY
     Dosage: 0.7 MG, QD
     Route: 058
     Dates: start: 20180708

REACTIONS (6)
  - Injection site bruising [Not Recovered/Not Resolved]
  - Product dose omission issue [Recovered/Resolved]
  - Needle issue [Recovered/Resolved]
  - Injection site pain [Not Recovered/Not Resolved]
  - Therapeutic response delayed [Not Recovered/Not Resolved]
  - Injection site swelling [Not Recovered/Not Resolved]

NARRATIVE: CASE EVENT DATE: 20180708
